FAERS Safety Report 7520089-0 (Version None)
Quarter: 2011Q2

REPORT INFORMATION
  Report Type: 
  Country: None (occurrence: None)
  Receive Date: 20110602
  Receipt Date: 20110421
  Transmission Date: 20111010
  Serious: No
  Sender: FDA-Public Use
  Company Number: US-US-EMD SERONO, INC.-7050363

PATIENT
  Sex: Female
  Weight: 76 kg

DRUGS (6)
  1. DETROL LA [Concomitant]
     Indication: MICTURITION URGENCY
  2. REBIF [Suspect]
     Indication: MULTIPLE SCLEROSIS
     Route: 058
     Dates: start: 20110111
  3. CRESTOR [Concomitant]
     Indication: HYPERLIPIDAEMIA
  4. SYNTHROID [Concomitant]
     Indication: HYPOTHYROIDISM
  5. CYMBALTA [Concomitant]
     Indication: DEPRESSION
  6. FENOFIBRATE [Concomitant]
     Indication: HYPERLIPIDAEMIA

REACTIONS (5)
  - BALANCE DISORDER [None]
  - INJECTION SITE ERYTHEMA [None]
  - CHILLS [None]
  - INJECTION SITE HAEMATOMA [None]
  - FATIGUE [None]
